FAERS Safety Report 19145334 (Version 1)
Quarter: 2021Q2

REPORT INFORMATION
  Report Type: Spontaneous
  Country: US (occurrence: US)
  Receive Date: 20210416
  Receipt Date: 20210416
  Transmission Date: 20210717
  Serious: No
  Sender: FDA-Public Use
  Company Number: US-BEH-2021130329

PATIENT
  Sex: Male
  Weight: 62.13 kg

DRUGS (1)
  1. HIZENTRA [Suspect]
     Active Substance: HUMAN IMMUNOGLOBULIN G
     Indication: STIFF PERSON SYNDROME
     Dosage: 27 GRAM, QW
     Route: 058
     Dates: start: 20200918

REACTIONS (4)
  - Off label use [Unknown]
  - Rash [Unknown]
  - No adverse event [Unknown]
  - Vomiting [Unknown]
